FAERS Safety Report 6977992-X (Version None)
Quarter: 2010Q3

REPORT INFORMATION
  Report Type: 
  Country: None (occurrence: None)
  Receive Date: 20100913
  Receipt Date: 20100830
  Transmission Date: 20110219
  Serious: Yes (Death)
  Sender: FDA-Public Use
  Company Number: TR-EISAI INC.-E7273-00182-SPO-TR

PATIENT
  Sex: Male

DRUGS (2)
  1. TARGRETIN [Suspect]
     Route: 048
     Dates: start: 20100715
  2. IFN-ALPHA-2A [Concomitant]
     Route: 067

REACTIONS (1)
  - HODGKIN'S DISEASE [None]
